FAERS Safety Report 4744367-3 (Version None)
Quarter: 2005Q3

REPORT INFORMATION
  Report Type: 
  Country: None (occurrence: None)
  Receive Date: 20050809
  Receipt Date: 20050725
  Transmission Date: 20060218
  Serious: Yes (Hospitalization, Other)
  Sender: FDA-Public Use
  Company Number: HQWYE865409FEB04

PATIENT
  Age: 50 Year
  Sex: Male
  Weight: 83.2 kg

DRUGS (8)
  1. MYLOTARG [Suspect]
     Indication: ACUTE MYELOID LEUKAEMIA
     Dosage: 9 MG/M^2 1X PER 1 DAY, INTRAVENOUS
     Route: 042
     Dates: start: 20031016, end: 20031016
  2. CYTARABINE [Suspect]
     Indication: ACUTE MYELOID LEUKAEMIA
     Dosage: 6000 MG 1X  PER 1 DAY, INTRAVENOUS
     Route: 042
     Dates: start: 20031010, end: 20031014
  3. ZOFRAN [Concomitant]
  4. DIFLUCAN [Concomitant]
  5. TEQUIN [Concomitant]
  6. ACYCLOVIR [Concomitant]
  7. AMBIEN [Concomitant]
  8. PRILOSEC [Concomitant]

REACTIONS (5)
  - CHILLS [None]
  - HEADACHE [None]
  - NEUTROPENIA [None]
  - PNEUMONIA FUNGAL [None]
  - PYREXIA [None]
